FAERS Safety Report 6148961-7 (Version None)
Quarter: 2009Q2

REPORT INFORMATION
  Report Type: 
  Country: None (occurrence: None)
  Receive Date: 20090406
  Receipt Date: 20090330
  Transmission Date: 20091009
  Serious: Yes (Death, Hospitalization)
  Sender: FDA-Public Use
  Company Number: SPV1-2009-00540

PATIENT
  Sex: Female

DRUGS (1)
  1. FOSRENOL [Suspect]
     Indication: HYPERPHOSPHATAEMIA
     Dosage: ORAL
     Route: 048
     Dates: end: 20090101

REACTIONS (10)
  - ASPIRATION BRONCHIAL [None]
  - BLOOD AMYLASE INCREASED [None]
  - DIARRHOEA [None]
  - DYSPNOEA [None]
  - FAECALOMA [None]
  - INTENTIONAL DRUG MISUSE [None]
  - INTESTINAL OBSTRUCTION [None]
  - RECTAL HAEMORRHAGE [None]
  - WRONG TECHNIQUE IN DRUG USAGE PROCESS [None]
  - X-RAY ABNORMAL [None]
